FAERS Safety Report 8901441 (Version 2)
Quarter: 2012Q4

REPORT INFORMATION
  Report Type: 
  Country: US (occurrence: US)
  Receive Date: 20121108
  Receipt Date: 20121119
  Transmission Date: 20130627
  Serious: Yes (Other)
  Sender: FDA-Public Use
  Company Number: US-GILEAD-2012-0064062

PATIENT
  Age: 50 Year
  Sex: Male

DRUGS (3)
  1. LETAIRIS [Suspect]
     Indication: PULMONARY ARTERIAL HYPERTENSION
     Dosage: 5 mg, QD
     Route: 048
     Dates: start: 20101123
  2. VIAGRA [Suspect]
  3. REMODULIN [Concomitant]

REACTIONS (8)
  - Syncope [Not Recovered/Not Resolved]
  - Humerus fracture [Unknown]
  - Joint dislocation [Unknown]
  - Joint injury [Unknown]
  - Fall [Unknown]
  - Hypotension [Not Recovered/Not Resolved]
  - Dizziness [Unknown]
  - Oedema [Not Recovered/Not Resolved]
